FAERS Safety Report 5386963-9 (Version None)
Quarter: 2007Q3

REPORT INFORMATION
  Report Type: 
  Country: None (occurrence: None)
  Receive Date: 20070713
  Receipt Date: 20070704
  Transmission Date: 20080115
  Serious: Yes (Other)
  Sender: FDA-Public Use
  Company Number: AT-PFIZER INC-2007055111

PATIENT
  Sex: Male
  Weight: 68 kg

DRUGS (3)
  1. XALATAN [Suspect]
     Indication: GLAUCOMA
     Route: 047
     Dates: start: 20010101, end: 20070601
  2. COSOPT [Suspect]
     Indication: GLAUCOMA
     Route: 047
  3. PARKEMED [Concomitant]
     Route: 048

REACTIONS (1)
  - PAINFUL ERECTION [None]
